FAERS Safety Report 5717066-9 (Version None)
Quarter: 2008Q2

REPORT INFORMATION
  Report Type: 
  Country: None (occurrence: None)
  Receive Date: 20080423
  Receipt Date: 20080410
  Transmission Date: 20081010
  Serious: Yes (Disabling)
  Sender: FDA-Public Use
  Company Number: APP200800275

PATIENT
  Sex: Female

DRUGS (2)
  1. SENSORCAINE [Suspect]
     Indication: MUSCULOSKELETAL PAIN
     Dosage: UNK, CONTINUOUS VIA PAIN PUMP
     Dates: start: 20030301
  2. NAROPIN [Suspect]
     Indication: MUSCULOSKELETAL PAIN
     Dosage: UNK, CONTINUOUS VIA PAIN PUMP
     Dates: start: 20030301

REACTIONS (2)
  - CHONDROLYSIS [None]
  - MUSCULOSKELETAL PAIN [None]
